FAERS Safety Report 11515784 (Version 1)
Quarter: 2015Q3

REPORT INFORMATION
  Report Type: Spontaneous
  Country: US (occurrence: US)
  Receive Date: 20150916
  Receipt Date: 20150916
  Transmission Date: 20151125
  Serious: No
  Sender: FDA-Public Use
  Company Number: US-BAUSCH-BL-2015-012058

PATIENT

DRUGS (2)
  1. DIAZGEL [Suspect]
     Active Substance: DIAZEPAM
  2. DIAZGEL [Suspect]
     Active Substance: DIAZEPAM
     Indication: PRODUCT USED FOR UNKNOWN INDICATION
     Dosage: 10 MG/ 2 SYSTEMS

REACTIONS (4)
  - Incorrect dose administered [Unknown]
  - Drug dispensing error [Unknown]
  - Device malfunction [Unknown]
  - No adverse event [Unknown]
